FAERS Safety Report 20174543 (Version 3)
Quarter: 2022Q1

REPORT INFORMATION
  Report Type: Spontaneous
  Country: CN (occurrence: CN)
  Receive Date: 20211213
  Receipt Date: 20220112
  Transmission Date: 20220423
  Serious: Yes (Hospitalization, Other)
  Sender: FDA-Public Use
  Company Number: CN-PFIZER INC-202101706780

PATIENT
  Age: 48 Year
  Sex: Male

DRUGS (1)
  1. ENBREL [Suspect]
     Active Substance: ETANERCEPT
     Indication: Ankylosing spondylitis
     Dosage: ONCE EVERY THREE OR FOUR WEEKS
     Route: 065
     Dates: start: 2017

REACTIONS (9)
  - Nephritic syndrome [Recovering/Resolving]
  - Hypoproteinaemia [Recovering/Resolving]
  - Hyperlipidaemia [Recovering/Resolving]
  - Hyperuricaemia [Recovering/Resolving]
  - Glomerulonephritis membranous [Recovering/Resolving]
  - Hepatic steatosis [Recovering/Resolving]
  - Protein urine present [Recovering/Resolving]
  - Oedema [Recovering/Resolving]
  - Off label use [Unknown]

NARRATIVE: CASE EVENT DATE: 20170101
